FAERS Safety Report 8489508-X (Version None)
Quarter: 2012Q3

REPORT INFORMATION
  Report Type: 
  Country: None (occurrence: None)
  Receive Date: 20120705
  Receipt Date: 20120629
  Transmission Date: 20120928
  Serious: Yes (Other)
  Sender: FDA-Public Use
  Company Number: BR-BAYER-2012-065639

PATIENT
  Age: 21 Year
  Sex: Female

DRUGS (1)
  1. MAGNEVIST [Suspect]
     Indication: COMPUTERISED TOMOGRAM
     Dosage: UNK UNK, ONCE
     Route: 042
     Dates: start: 20120627, end: 20120627

REACTIONS (2)
  - RASH PAPULAR [None]
  - HYPOAESTHESIA [None]
